FAERS Safety Report 25658916 (Version 2)
Quarter: 2025Q3

REPORT INFORMATION
  Report Type: Spontaneous
  Country: US (occurrence: US)
  Receive Date: 20250808
  Receipt Date: 20250826
  Transmission Date: 20251020
  Serious: No
  Sender: Kenvue
  Company Number: US-KENVUE-20250710438

PATIENT
  Sex: Female

DRUGS (3)
  1. TYLENOL 8 HR ARTHRITIS PAIN [Suspect]
     Active Substance: ACETAMINOPHEN
     Indication: Arthralgia
     Dosage: 6 DOSAGE FORM ON A DAY, 2 TABLETS EVERY 8 HOUR
     Route: 065
     Dates: start: 202507
  2. TYLENOL 8 HR ARTHRITIS PAIN [Suspect]
     Active Substance: ACETAMINOPHEN
     Dosage: 4 DOSAGE FORM ON A DAY, 2 TABLETS EVERY 8 HOUR
     Route: 065
  3. Unspecified painkiller [Concomitant]
     Indication: Arthralgia
     Route: 065

REACTIONS (1)
  - Product administration error [Unknown]

NARRATIVE: CASE EVENT DATE: 20250701
